FAERS Safety Report 4298021-5 (Version None)
Quarter: 2004Q1

REPORT INFORMATION
  Report Type: 
  Country: None (occurrence: None)
  Receive Date: 20040218
  Receipt Date: 20011002
  Transmission Date: 20041129
  Serious: Yes (Other)
  Sender: FDA-Public Use
  Company Number: US-BRISTOL-MYERS SQUIBB COMPANY-11472164

PATIENT
  Sex: Female

DRUGS (14)
  1. STADOL [Suspect]
     Route: 045
  2. STADOL [Suspect]
  3. SOMA [Concomitant]
  4. VISTARIL [Concomitant]
  5. KLONOPIN [Concomitant]
  6. DEMEROL [Concomitant]
  7. PHENERGAN [Concomitant]
  8. LORCET-HD [Concomitant]
  9. TORADOL [Concomitant]
  10. ULTRAM [Concomitant]
  11. IMITREX [Concomitant]
  12. VICODIN [Concomitant]
  13. PAXIL [Concomitant]
  14. PERCOCET [Concomitant]

REACTIONS (1)
  - DEPENDENCE [None]
